FAERS Safety Report 20874160 (Version 1)
Quarter: 2022Q2

REPORT INFORMATION
  Report Type: Spontaneous
  Country: GB (occurrence: GB)
  Receive Date: 20220525
  Receipt Date: 20220525
  Transmission Date: 20220721
  Serious: Yes (Life-Threatening, Other)
  Sender: FDA-Public Use
  Company Number: None

PATIENT
  Age: 49 Year
  Sex: Female

DRUGS (20)
  1. LEVETIRACETAM [Suspect]
     Active Substance: LEVETIRACETAM
     Indication: Seizure
     Dosage: 4.5 G STAT (URGENTLY) DOSE
     Route: 042
     Dates: start: 20211116, end: 20211116
  2. LEVETIRACETAM [Suspect]
     Active Substance: LEVETIRACETAM
     Dosage: 500 MG, 2X/DAY
     Route: 042
     Dates: start: 20211116, end: 20211119
  3. AMIODARONE [Suspect]
     Active Substance: AMIODARONE
     Dosage: 300 MG STAT (URGENTLY) THEN 900 MG OVER 24 HOURS
     Dates: start: 20211117, end: 20211118
  4. AMITRIPTYLINE [Concomitant]
     Active Substance: AMITRIPTYLINE
     Dosage: ON (UNKNOWN MEANING), PRIOR TO ADMISSION
     Route: 048
  5. BISOPROLOL [Concomitant]
     Active Substance: BISOPROLOL
     Dosage: 1.25 MG, 1X/DAY
     Route: 048
     Dates: start: 20211118, end: 20211120
  6. DALTEPARIN SODIUM [Concomitant]
     Active Substance: DALTEPARIN SODIUM
     Dosage: 5000 IU, 2X/DAY
     Route: 058
  7. METFORMIN [Concomitant]
     Active Substance: METFORMIN HYDROCHLORIDE
     Dosage: 2 G, 1X/DAY, PRIOR TO ADMISSION
     Route: 048
  8. MORPHINE [Concomitant]
     Active Substance: MORPHINE
     Dosage: 60 MG, 1X/DAY, PRIOR TO ADMISSION, MODIFIED RELEASE
     Route: 048
  9. ACYCLOVIR [Concomitant]
     Active Substance: ACYCLOVIR
     Route: 042
     Dates: start: 20211116, end: 20211117
  10. AZATHIOPRINE [Concomitant]
     Active Substance: AZATHIOPRINE
     Dosage: 75 MG, 1X/DAY, PRIOR TO ADMISSION
     Route: 048
  11. FLUOXETINE [Concomitant]
     Active Substance: FLUOXETINE HYDROCHLORIDE
     Dosage: 60 MG, 1X/DAY, PRIOR TO ADMISSION
     Route: 048
  12. GABAPENTIN [Concomitant]
     Active Substance: GABAPENTIN
     Dosage: 900 MG OM (UNCLEAR MEANING) + LUNCHTIME 1200 MG ON (UNCLEAR MEANING), PRIOR TO ADMISSION
     Route: 048
  13. NITROGLYCERIN [Concomitant]
     Active Substance: NITROGLYCERIN
     Route: 042
     Dates: start: 20211120, end: 20211121
  14. LABETALOL [Concomitant]
     Active Substance: LABETALOL\LABETALOL HYDROCHLORIDE
     Route: 042
     Dates: start: 20211117, end: 20211121
  15. MEROPENEM [Concomitant]
     Active Substance: MEROPENEM
     Route: 042
     Dates: start: 20211116, end: 20211117
  16. ASACOL [Concomitant]
     Active Substance: MESALAMINE
     Dosage: 2.4 G, 2X/DAY, PRIOR TO ADMISSION
     Route: 048
  17. NOREPINEPHRINE [Concomitant]
     Active Substance: NOREPINEPHRINE
     Route: 042
     Dates: start: 20211116, end: 20211119
  18. PROPOFOL [Concomitant]
     Active Substance: PROPOFOL
     Route: 042
     Dates: start: 20211116, end: 20211119
  19. PROPRANOLOL [Concomitant]
     Active Substance: PROPRANOLOL HYDROCHLORIDE
     Indication: Sedation
     Route: 048
     Dates: start: 20211120
  20. REMIFENTANIL [Concomitant]
     Active Substance: REMIFENTANIL
     Route: 042
     Dates: start: 20211116, end: 20211119

REACTIONS (7)
  - Torsade de pointes [Recovering/Resolving]
  - Seizure [Recovering/Resolving]
  - Hyperkalaemia [Unknown]
  - Condition aggravated [Unknown]
  - Cardiac arrest [Unknown]
  - Ventricular tachycardia [Unknown]
  - Electrocardiogram QT prolonged [Unknown]

NARRATIVE: CASE EVENT DATE: 20211116
